FAERS Safety Report 15467247 (Version 1)
Quarter: 2018Q4

REPORT INFORMATION
  Report Type: Spontaneous
  Country: DE (occurrence: DE)
  Receive Date: 20181005
  Receipt Date: 20181005
  Transmission Date: 20190204
  Serious: Yes (Other)
  Sender: FDA-Public Use
  Company Number: DE-TEVA-2018-DE-961137

PATIENT
  Age: 76 Year
  Sex: Male

DRUGS (8)
  1. QUTENZA [Suspect]
     Active Substance: CAPSAICIN
     Indication: PRODUCT USED FOR UNKNOWN INDICATION
     Dosage: DF [AT ONE FOOT]
     Route: 061
     Dates: start: 201101
  2. MORPHINE [Suspect]
     Active Substance: MORPHINE
     Indication: PRODUCT USED FOR UNKNOWN INDICATION
     Dosage: 3 X 5 DROPS DAILY
     Route: 065
     Dates: start: 201102
  3. MAGNESIUM DROPS [Suspect]
     Active Substance: MAGNESIUM
     Dosage: 3 X 15 DROPS DAILY
     Route: 065
     Dates: start: 201102
  4. QUTENZA [Suspect]
     Active Substance: CAPSAICIN
     Indication: PRODUCT USED FOR UNKNOWN INDICATION
     Dosage: DF [AT ONE FOOT]
     Route: 061
     Dates: start: 201101
  5. MORPHINE [Suspect]
     Active Substance: MORPHINE
     Dosage: 3 X 5 DROPS DAILY
     Route: 065
     Dates: start: 201102
  6. TACROLIMUS. [Concomitant]
     Active Substance: TACROLIMUS
     Route: 065
  7. MAGNESIUM DROPS [Suspect]
     Active Substance: MAGNESIUM
     Indication: PRODUCT USED FOR UNKNOWN INDICATION
     Dosage: 3 X 15 DROPS DAILY
     Route: 065
     Dates: start: 201102
  8. TACROLIMUS. [Concomitant]
     Active Substance: TACROLIMUS
     Dosage: DF
     Route: 065

REACTIONS (17)
  - Confusional state [Unknown]
  - Paralysis [Not Recovered/Not Resolved]
  - Balance disorder [Unknown]
  - Muscle spasms [Not Recovered/Not Resolved]
  - Fluid retention [Unknown]
  - Pain in extremity [Recovering/Resolving]
  - Pain in extremity [Not Recovered/Not Resolved]
  - Abdominal pain [Unknown]
  - Muscular weakness [Unknown]
  - Hypokinesia [Unknown]
  - Application site pain [Recovered/Resolved]
  - Drug ineffective [Unknown]
  - Back pain [Unknown]
  - Product quality issue [Unknown]
  - Abdominal pain upper [Unknown]
  - Disorientation [Unknown]
  - Erythema [Unknown]

NARRATIVE: CASE EVENT DATE: 2011
